FAERS Safety Report 8081494-X (Version None)
Quarter: 2012Q1

REPORT INFORMATION
  Report Type: 
  Country: None (occurrence: None)
  Receive Date: 20120130
  Receipt Date: 20120120
  Transmission Date: 20120608
  Serious: Yes (Other)
  Sender: FDA-Public Use
  Company Number: PHHY2012GR005615

PATIENT
  Age: 58 Year
  Sex: Male

DRUGS (3)
  1. EXELON [Suspect]
     Dosage: 9.5 MG\24H
     Route: 062
  2. EXELON [Suspect]
     Dosage: 4.6MG\24H
     Route: 062
     Dates: start: 20110801
  3. EXELON [Suspect]
     Dosage: 4.6MG\24H
     Route: 062

REACTIONS (4)
  - HYPERHIDROSIS [None]
  - DYSPNOEA [None]
  - LOSS OF CONSCIOUSNESS [None]
  - HALLUCINATION [None]
